FAERS Safety Report 24810694 (Version 1)
Quarter: 2025Q1

REPORT INFORMATION
  Report Type: Spontaneous
  Country: US (occurrence: None)
  Receive Date: 20250104
  Receipt Date: 20250104
  Transmission Date: 20250408
  Serious: Yes (Life-Threatening, Hospitalization, Other)
  Sender: FDA-CTU
  Company Number: None

PATIENT
  Age: 5 Month
  Sex: Female
  Weight: 6.05 kg

DRUGS (3)
  1. DIETARY SUPPLEMENT [Suspect]
     Active Substance: DIETARY SUPPLEMENT
     Indication: Product used for unknown indication
     Route: 048
     Dates: start: 20241102, end: 20241110
  2. CHILDRENS BENADRYL ALLERGY [Suspect]
     Active Substance: DIPHENHYDRAMINE HYDROCHLORIDE
  3. VITAMIN D [Concomitant]
     Active Substance: VITAMIN D NOS

REACTIONS (11)
  - Anaphylactic reaction [None]
  - Flushing [None]
  - Feeling hot [None]
  - Swelling of eyelid [None]
  - Swelling face [None]
  - Urticaria [None]
  - Crying [None]
  - Blood pressure decreased [None]
  - Oxygen saturation decreased [None]
  - Brief resolved unexplained event [None]
  - Allergic reaction to excipient [None]

NARRATIVE: CASE EVENT DATE: 20241110
